FAERS Safety Report 5606921-6 (Version None)
Quarter: 2008Q1

REPORT INFORMATION
  Report Type: 
  Country: None (occurrence: None)
  Receive Date: 20080129
  Receipt Date: 20080122
  Transmission Date: 20080703
  Serious: Yes (Death)
  Sender: FDA-Public Use
  Company Number: US-GENENTECH-254718

PATIENT
  Sex: Male
  Weight: 82.086 kg

DRUGS (3)
  1. BEVACIZUMAB [Suspect]
     Indication: NON-SMALL CELL LUNG CANCER
     Dosage: 10 MG/KG, Q2W
     Route: 042
     Dates: start: 20071010
  2. ALIMTA [Suspect]
     Indication: NON-SMALL CELL LUNG CANCER
     Dosage: 281.25 MG/M2, Q2W
     Route: 042
     Dates: start: 20071010
  3. GEMZAR [Suspect]
     Indication: NON-SMALL CELL LUNG CANCER
     Dosage: 843.75 MG/M2, Q2W
     Route: 042
     Dates: start: 20071010

REACTIONS (1)
  - DYSPNOEA [None]
